FAERS Safety Report 5355403-8 (Version None)
Quarter: 2007Q2

REPORT INFORMATION
  Report Type: 
  Country: None (occurrence: None)
  Receive Date: 20070611
  Receipt Date: 20070611
  Transmission Date: 20071010
  Serious: Yes (Life-Threatening, Other)
  Sender: FDA-Public Use
  Company Number: None

PATIENT
  Sex: Female
  Weight: 61.2356 kg

DRUGS (2)
  1. PROAIR HFA [Suspect]
     Indication: ASTHMA
     Dosage: 2 PUFF EVERY 4 HRS 4 HRS INHALER
     Route: 055
     Dates: start: 20070301, end: 20070501
  2. PROVENTIL-HFA [Suspect]
     Indication: ASTHMA
     Dosage: 2 PUFF EV 4 HRS 4 HRS INHALER
     Route: 055
     Dates: start: 20070301, end: 20070501

REACTIONS (4)
  - BRONCHOSPASM [None]
  - DRUG INEFFECTIVE [None]
  - DYSPNOEA [None]
  - WHEEZING [None]
